FAERS Safety Report 4854895-8 (Version None)
Quarter: 2005Q4

REPORT INFORMATION
  Report Type: 
  Country: None (occurrence: None)
  Receive Date: 20051128
  Receipt Date: 20050906
  Transmission Date: 20060501
  Serious: Yes (Other)
  Sender: FDA-Public Use
  Company Number: 217527

PATIENT
  Age: 58 Year
  Sex: Female

DRUGS (1)
  1. RAPTIVA [Suspect]
     Indication: PSORIASIS
     Dosage: UNK, 1/WEEK, SUBCUTANEOUS
     Route: 058
     Dates: start: 20040827, end: 20050706

REACTIONS (1)
  - SQUAMOUS CELL CARCINOMA [None]
